FAERS Safety Report 25056083 (Version 3)
Quarter: 2025Q2

REPORT INFORMATION
  Report Type: Report from Study
  Country: BR (occurrence: BR)
  Receive Date: 20250309
  Receipt Date: 20250505
  Transmission Date: 20250716
  Serious: Yes (Other)
  Sender: JOHNSON AND JOHNSON
  Company Number: BR-JNJFOC-20250303526

PATIENT
  Age: 25 Year
  Sex: Male

DRUGS (3)
  1. SPRAVATO [Suspect]
     Active Substance: ESKETAMINE
     Indication: Depression
     Dosage: IN THE FIRST MONTH (24 VIALS PER MONTH)
     Route: 045
  2. SPRAVATO [Suspect]
     Active Substance: ESKETAMINE
     Indication: Depression suicidal
     Dosage: FROM SECOND TO THE FIFTH MONTH (48 VIALS PER MONTH)
     Route: 045
  3. SPRAVATO [Suspect]
     Active Substance: ESKETAMINE
     Dosage: FROM THE SIXTH MONTH (12 VIALS)
     Route: 045

REACTIONS (4)
  - Suicidal ideation [Unknown]
  - Major depression [Unknown]
  - Quality of life decreased [Not Recovered/Not Resolved]
  - Off label use [Unknown]
